FAERS Safety Report 7033034-1 (Version None)
Quarter: 2010Q4

REPORT INFORMATION
  Report Type: 
  Country: None (occurrence: None)
  Receive Date: 20101007
  Receipt Date: 20100930
  Transmission Date: 20110411
  Serious: Yes (Hospitalization, Other)
  Sender: FDA-Public Use
  Company Number: US-PFIZER INC-2010095277

PATIENT
  Sex: Female

DRUGS (17)
  1. CHANTIX [Suspect]
     Indication: SMOKING CESSATION THERAPY
     Dosage: 1 MG, 2X/DAY
     Route: 048
     Dates: start: 20080601, end: 20081123
  2. XANAX [Concomitant]
     Indication: ANXIETY
     Dosage: UNK
     Dates: start: 20000101, end: 20081101
  3. OXYCONTIN [Concomitant]
     Indication: BACK PAIN
     Dosage: UNK
     Dates: start: 20020101, end: 20081101
  4. EFFEXOR XR [Concomitant]
     Indication: DEPRESSION
     Dosage: UNK
     Dates: start: 20020101, end: 20081101
  5. CENTRUM [Concomitant]
     Indication: VITAMIN SUPPLEMENTATION
     Dosage: UNK
     Dates: start: 20030101
  6. PREMARIN [Concomitant]
     Indication: MENOPAUSE
     Dosage: UNK
     Dates: start: 20030101
  7. SIMVASTATIN [Concomitant]
     Indication: INFLAMMATION
     Dosage: UNK
     Dates: start: 20000101, end: 20100101
  8. MAXALT [Concomitant]
     Indication: MIGRAINE
     Dosage: UNK
     Dates: start: 20000101, end: 20100101
  9. METOPROLOL [Concomitant]
     Indication: CARDIAC VALVE DISEASE
     Dosage: UNK
     Dates: start: 19970101
  10. METOPROLOL [Concomitant]
     Indication: HEART RATE IRREGULAR
  11. CARISOPRODOL [Concomitant]
     Indication: HEART RATE IRREGULAR
     Dosage: UNK
     Dates: start: 19970101, end: 20100101
  12. TOPROL-XL [Concomitant]
     Indication: HEART RATE IRREGULAR
     Dosage: UNK
     Dates: start: 19970101, end: 20100101
  13. GABAPENTIN [Concomitant]
     Indication: INFLAMMATION
  14. ALPRAZOLAM [Concomitant]
     Indication: LUNG DISORDER
     Dosage: UNK
     Dates: start: 20000101
  15. HYDROCODONE [Concomitant]
     Indication: MUSCULOSKELETAL CHEST PAIN
     Dosage: UNK
     Dates: start: 20000101
  16. HYDROCODONE [Concomitant]
     Indication: BACK PAIN
  17. ALBUTEROL [Concomitant]
     Indication: INHALATION THERAPY
     Dosage: UNK
     Dates: start: 20000101, end: 20100101

REACTIONS (6)
  - AMNESIA [None]
  - DEPRESSION [None]
  - INTENTIONAL OVERDOSE [None]
  - MENTAL DISORDER [None]
  - MOOD SWINGS [None]
  - SUICIDE ATTEMPT [None]
